FAERS Safety Report 4527852-9 (Version None)
Quarter: 2004Q4

REPORT INFORMATION
  Report Type: 
  Country: None (occurrence: None)
  Receive Date: 20041123
  Receipt Date: 20040730
  Transmission Date: 20050328
  Serious: Yes (Hospitalization)
  Sender: FDA-Public Use
  Company Number: ATO-04-0721

PATIENT
  Age: 53 Year
  Sex: Male
  Weight: 89.3586 kg

DRUGS (4)
  1. TRISENOX [Suspect]
     Indication: MULTIPLE MYELOMA
     Dosage: 22 MG, BIW, IVI
     Dates: end: 20040729
  2. ASCORBIC ACID [Suspect]
     Indication: MULTIPLE MYELOMA
     Dosage: 1 GM, BIW, IVI
     Dates: end: 20040729
  3. NORFLEX [Concomitant]
  4. AREDIA [Concomitant]

REACTIONS (6)
  - CHILLS [None]
  - NAUSEA [None]
  - OEDEMA PERIPHERAL [None]
  - PYREXIA [None]
  - VOMITING [None]
  - WHITE BLOOD CELL COUNT DECREASED [None]
